FAERS Safety Report 6234848-8 (Version None)
Quarter: 2009Q2

REPORT INFORMATION
  Report Type: 
  Country: None (occurrence: None)
  Receive Date: 20090618
  Receipt Date: 20090611
  Transmission Date: 20091009
  Serious: Yes (Other)
  Sender: FDA-Public Use
  Company Number: JP-MERCK-0906USA02705

PATIENT
  Age: 67 Year
  Sex: Female

DRUGS (2)
  1. ZETIA [Suspect]
     Indication: DYSLIPIDAEMIA
     Route: 048
     Dates: start: 20081001
  2. ASPIRIN [Concomitant]
     Route: 065

REACTIONS (2)
  - AUTOIMMUNE HEPATITIS [None]
  - OVERDOSE [None]
